FAERS Safety Report 17543793 (Version 1)
Quarter: 2020Q1

REPORT INFORMATION
  Report Type: Spontaneous
  Country: US (occurrence: US)
  Receive Date: 20200306
  Receipt Date: 20200306
  Transmission Date: 20200409
  Serious: Yes (Hospitalization)
  Sender: FDA-Public Use
  Company Number: None

PATIENT
  Sex: Female

DRUGS (12)
  1. CRANBERRY. [Concomitant]
     Active Substance: CRANBERRY
  2. PROBIOTIC [Concomitant]
     Active Substance: PROBIOTICS NOS
  3. COPAXONE [Concomitant]
     Active Substance: GLATIRAMER ACETATE
  4. GREEN TEA EX LIQ [Concomitant]
  5. MAGNESIUM [Concomitant]
     Active Substance: MAGNESIUM
  6. GLATIRAMER 40MG/ML SYR [Suspect]
     Active Substance: GLATIRAMER
     Indication: MULTIPLE SCLEROSIS
     Route: 058
  7. VITAMIN D [Concomitant]
     Active Substance: VITAMIN D NOS
  8. PREDNISONE. [Concomitant]
     Active Substance: PREDNISONE
  9. TAMIFLU [Concomitant]
     Active Substance: OSELTAMIVIR PHOSPHATE
  10. CODEINE/GG SOL [Concomitant]
  11. CO-Q CAP OMEGA 3 [Concomitant]
  12. FISH OIL [Concomitant]
     Active Substance: FISH OIL

REACTIONS (2)
  - Therapy cessation [None]
  - Hypersensitivity [None]
